FAERS Safety Report 8122011-5 (Version None)
Quarter: 2012Q1

REPORT INFORMATION
  Report Type: 
  Country: None (occurrence: None)
  Receive Date: 20120208
  Receipt Date: 20120203
  Transmission Date: 20120608
  Serious: Yes (Death, Hospitalization, Other)
  Sender: FDA-Public Use
  Company Number: US-CELGENEUS-163-21880-12020507

PATIENT
  Age: 72 Year
  Sex: Female

DRUGS (7)
  1. REVLIMID [Suspect]
     Indication: MYELODYSPLASTIC SYNDROME
     Dosage: 10 MILLIGRAM
     Route: 048
     Dates: start: 20101101, end: 20110301
  2. MEGACE [Concomitant]
     Route: 065
  3. ATIVAN [Concomitant]
     Route: 065
  4. ASPIRIN [Concomitant]
     Route: 065
  5. BENEFIBER [Concomitant]
     Route: 065
  6. CALCIUM [Concomitant]
     Route: 065
  7. MULTI-VITAMINS [Concomitant]
     Route: 065

REACTIONS (3)
  - PLATELET COUNT DECREASED [None]
  - MYELODYSPLASTIC SYNDROME [None]
  - ACUTE LEUKAEMIA [None]
